FAERS Safety Report 12159740 (Version 1)
Quarter: 2016Q1

REPORT INFORMATION
  Report Type: Spontaneous
  Country: US (occurrence: None)
  Receive Date: 20160307
  Receipt Date: 20160307
  Transmission Date: 20160526
  Serious: Yes (Hospitalization)
  Sender: FDA-Public Use
  Company Number: None

PATIENT
  Age: 50 Year
  Sex: Male
  Weight: 100 kg

DRUGS (7)
  1. ARMOUR THYROID [Concomitant]
     Active Substance: THYROID, PORCINE
  2. OMEPRAZOLE. [Concomitant]
     Active Substance: OMEPRAZOLE
  3. LOSARTAN. [Concomitant]
     Active Substance: LOSARTAN
  4. EZETIMIBE. [Concomitant]
     Active Substance: EZETIMIBE
  5. BUPROPRION XL [Concomitant]
     Active Substance: BUPROPION
  6. LINAGLIPTIN [Suspect]
     Active Substance: LINAGLIPTIN
     Indication: DIABETES MELLITUS
     Route: 048
  7. ALLOPURINOL. [Concomitant]
     Active Substance: ALLOPURINOL

REACTIONS (3)
  - Pancreatitis [None]
  - Hyperosmolar state [None]
  - Diabetic ketoacidosis [None]

NARRATIVE: CASE EVENT DATE: 20160224
